FAERS Safety Report 18691833 (Version 1)
Quarter: 2021Q1

REPORT INFORMATION
  Report Type: Spontaneous
  Country: US (occurrence: US)
  Receive Date: 20210102
  Receipt Date: 20210102
  Transmission Date: 20210419
  Serious: Yes (Hospitalization, Other)
  Sender: FDA-Public Use
  Company Number: US-ACCORD-212731

PATIENT
  Age: 41 Year
  Sex: Male

DRUGS (3)
  1. CETUXIMAB. [Suspect]
     Active Substance: CETUXIMAB
     Indication: ADENOCARCINOMA OF COLON
     Dosage: EVERY TWO WEEKS (11 CYCLES TOTAL)
     Dates: start: 20161130, end: 20180928
  2. IRINOTECAN [Suspect]
     Active Substance: IRINOTECAN
     Indication: ADENOCARCINOMA OF COLON
     Dosage: EVERY TWO WEEKS (11 CYCLES TOTAL)
     Dates: start: 20161130, end: 20180928
  3. OXALIPLATIN. [Suspect]
     Active Substance: OXALIPLATIN
     Indication: ADENOCARCINOMA OF COLON
     Dosage: EVERY TWO WEEKS (11 CYCLES TOTAL)
     Dates: start: 20161130, end: 20180928

REACTIONS (2)
  - Pneumonia [Unknown]
  - Respiratory failure [Unknown]
